FAERS Safety Report 24075952 (Version 2)
Quarter: 2025Q3

REPORT INFORMATION
  Report Type: Spontaneous
  Country: BR (occurrence: BR)
  Receive Date: 20240710
  Receipt Date: 20250926
  Transmission Date: 20251021
  Serious: Yes (Other)
  Sender: BIOMARIN
  Company Number: BR-BIOMARINAP-BR-2024-159068

PATIENT
  Age: 23 Year
  Sex: Male

DRUGS (1)
  1. NAGLAZYME [Suspect]
     Active Substance: GALSULFASE
     Indication: Mucopolysaccharidosis VI

REACTIONS (7)
  - Back pain [Unknown]
  - Gait disturbance [Not Recovered/Not Resolved]
  - Limb deformity [Not Recovered/Not Resolved]
  - Sleep apnoea syndrome [Unknown]
  - Sleep disorder due to a general medical condition [Not Recovered/Not Resolved]
  - Anxiety [Unknown]
  - Pain [Not Recovered/Not Resolved]
